FAERS Safety Report 7532967-7 (Version None)
Quarter: 2011Q2

REPORT INFORMATION
  Report Type: 
  Country: None (occurrence: None)
  Receive Date: 20110608
  Receipt Date: 20110603
  Transmission Date: 20111010
  Serious: Yes (Other)
  Sender: FDA-Public Use
  Company Number: US-PFIZER INC-2010006377

PATIENT
  Sex: Male

DRUGS (4)
  1. CHANTIX [Suspect]
     Indication: SMOKING CESSATION THERAPY
     Dosage: VARIED-INCREASING
     Dates: start: 20080101
  2. ROBINUL FORTE [Concomitant]
     Dosage: UNK
     Dates: start: 20070924
  3. LOTREL [Concomitant]
     Dosage: UNK
     Dates: start: 20070123
  4. CYMBALTA [Concomitant]
     Dosage: UNK
     Dates: start: 20070123

REACTIONS (3)
  - INTENTIONAL OVERDOSE [None]
  - SUICIDE ATTEMPT [None]
  - DEPRESSION [None]
